FAERS Safety Report 18512097 (Version 1)
Quarter: 2020Q4

REPORT INFORMATION
  Report Type: Spontaneous
  Country: US (occurrence: US)
  Receive Date: 20201117
  Receipt Date: 20201117
  Transmission Date: 20210114
  Serious: Yes (Death, Other)
  Sender: FDA-Public Use
  Company Number: US-PURDUE-USA-2020-0173838

PATIENT
  Sex: Male

DRUGS (8)
  1. OXYCONTIN [Suspect]
     Active Substance: OXYCODONE HYDROCHLORIDE
     Indication: SPINAL OPERATION
     Route: 048
  2. HYDROCODONE BITARTRATE/ACETAMINOPHEN [Suspect]
     Active Substance: ACETAMINOPHEN\HYDROCODONE BITARTRATE
     Indication: SPINAL OPERATION
     Route: 048
  3. HYDROMORPHONE HCL (SIMILAR TO 19-892) [Suspect]
     Active Substance: HYDROMORPHONE HYDROCHLORIDE
     Indication: SPINAL OPERATION
     Route: 048
  4. OXYCODONE HYDROCHLORIDE. [Suspect]
     Active Substance: OXYCODONE HYDROCHLORIDE
     Indication: SPINAL OPERATION
     Route: 048
  5. TRAMADOL. [Suspect]
     Active Substance: TRAMADOL
     Indication: SPINAL OPERATION
     Route: 065
  6. MS CONTIN [Suspect]
     Active Substance: MORPHINE SULFATE
     Indication: SPINAL OPERATION
     Route: 048
  7. OXYCODONE HYDROCHLORIDE (SIMILAR TO NDA 22-272) [Suspect]
     Active Substance: OXYCODONE HYDROCHLORIDE
     Indication: SPINAL OPERATION
     Route: 048
  8. OXYCODONE/ ACETAMINOPHEN TABLETS [Suspect]
     Active Substance: ACETAMINOPHEN\OXYCODONE HYDROCHLORIDE
     Indication: SPINAL OPERATION
     Route: 048

REACTIONS (3)
  - Drowning [Fatal]
  - Overdose [Unknown]
  - Drug dependence [Unknown]

NARRATIVE: CASE EVENT DATE: 20140920
